FAERS Safety Report 10379695 (Version 1)
Quarter: 2014Q3

REPORT INFORMATION
  Report Type: Spontaneous
  Country: FR (occurrence: None)
  Receive Date: 20140808
  Receipt Date: 20140808
  Transmission Date: 20150326
  Serious: Yes (Other)
  Sender: FDA-Public Use
  Company Number: 2467996

PATIENT
  Age: 62 Year
  Sex: Female

DRUGS (14)
  1. DOCETAXEL [Suspect]
     Active Substance: DOCETAXEL
     Indication: BREAST CANCER
     Dosage: 120 MG MILLIGRAM(S), 1 WEEK
     Route: 042
     Dates: start: 20121126, end: 20130313
  2. HALAVEN [Concomitant]
     Active Substance: ERIBULIN MESYLATE
  3. INNOHEP [Concomitant]
     Active Substance: TINZAPARIN SODIUM
  4. EPIRUBICIN [Suspect]
     Active Substance: EPIRUBICIN
     Indication: BREAST CANCER
     Route: 042
     Dates: start: 20120425, end: 20120816
  5. PACLITAXEL SANDOZ [Suspect]
     Active Substance: PACLITAXEL
     Indication: BREAST CANCER
     Route: 042
     Dates: start: 20091029, end: 20100407
  6. ENDOXAN /00021101/ [Suspect]
     Active Substance: CYCLOPHOSPHAMIDE
     Indication: BREAST CANCER
     Route: 042
     Dates: start: 20120425, end: 20120816
  7. AVASTIN [Suspect]
     Active Substance: BEVACIZUMAB
     Indication: BREAST CANCER
     Dosage: 10 MG/KG MILLIGRAM(S)/KILOGRAM (1 WEEK)
     Route: 042
     Dates: start: 20091026, end: 20100407
  8. PAMIDRONATDINATRIUM [Concomitant]
  9. XELODA [Suspect]
     Active Substance: CAPECITABINE
     Indication: BREAST CANCER
     Dosage: 19 COURSES
     Dates: start: 20100915, end: 20120318
  10. XGEVA [Suspect]
     Active Substance: DENOSUMAB
     Indication: METASTASES TO BONE
     Dosage: 120 MG MILLIGRAM(S), 1 WEEK
     Route: 058
     Dates: start: 20130717, end: 20131010
  11. ZOMETA [Concomitant]
     Active Substance: ZOLEDRONIC ACID
  12. ANTITHROMBOTIC AGENTS [Concomitant]
     Active Substance: UNSPECIFIED INGREDIENT
  13. PACLITAXEL KABI [Suspect]
     Active Substance: PACLITAXEL
     Indication: BREAST CANCER
     Dosage: 135 MG MILLIGRAM(S), 1 WEEK
     Route: 042
     Dates: start: 20130410, end: 20130904
  14. TAMOXIFEN SANDOZ [Suspect]
     Active Substance: TAMOXIFEN
     Indication: BREAST CANCER
     Dosage: 20 MG MILLIGRAM(S), 1 DAY
     Route: 048
     Dates: start: 20120919, end: 20121009

REACTIONS (3)
  - Hepatic cirrhosis [None]
  - Portal hypertension [None]
  - Varices oesophageal [None]

NARRATIVE: CASE EVENT DATE: 201401
